FAERS Safety Report 8496343-5 (Version None)
Quarter: 2012Q3

REPORT INFORMATION
  Report Type: 
  Country: None (occurrence: None)
  Receive Date: 20120709
  Receipt Date: 20120703
  Transmission Date: 20120928
  Serious: No
  Sender: FDA-Public Use
  Company Number: US-PFIZER INC-2012092790

PATIENT
  Sex: Female
  Weight: 80.726 kg

DRUGS (1)
  1. NEURONTIN [Suspect]
     Dosage: UNK
     Route: 048

REACTIONS (4)
  - GLOSSITIS [None]
  - TONGUE DISORDER [None]
  - POOR QUALITY DRUG ADMINISTERED [None]
  - DIARRHOEA [None]
